FAERS Safety Report 4821916-8 (Version None)
Quarter: 2005Q4

REPORT INFORMATION
  Report Type: 
  Country: None (occurrence: None)
  Receive Date: 20051103
  Receipt Date: 20050926
  Transmission Date: 20060501
  Serious: Yes (Hospitalization)
  Sender: FDA-Public Use
  Company Number: 200518520GDDC

PATIENT
  Age: 63 Year
  Sex: Male
  Weight: 90 kg

DRUGS (12)
  1. CISPLATIN [Suspect]
     Indication: NEOPLASM MALIGNANT
     Dates: start: 20050422, end: 20050726
  2. RADIOTHERAPY [Suspect]
     Indication: NEOPLASM MALIGNANT
  3. FLUOROURACIL [Suspect]
     Indication: NEOPLASM MALIGNANT
     Dates: start: 20050422, end: 20050726
  4. NITROPLAST [Concomitant]
  5. SELOKEN [Concomitant]
  6. PREVENCOR [Concomitant]
  7. ENALAPRIL [Concomitant]
  8. ADIRO [Concomitant]
  9. MEGEFREN [Concomitant]
  10. OMEPRAZOLE [Concomitant]
  11. DURAGESIC-100 [Concomitant]
  12. DENVAR [Concomitant]

REACTIONS (8)
  - ANAEMIA [None]
  - MUCOSAL INFLAMMATION [None]
  - NAUSEA [None]
  - ODYNOPHAGIA [None]
  - PHARYNGITIS [None]
  - RENAL FAILURE [None]
  - STENOTROPHOMONAS INFECTION [None]
  - STOMATITIS [None]
